FAERS Safety Report 5786843-0 (Version None)
Quarter: 2008Q2

REPORT INFORMATION
  Report Type: 
  Country: None (occurrence: None)
  Receive Date: 20080620
  Receipt Date: 20080613
  Transmission Date: 20081010
  Serious: Yes (Other)
  Sender: FDA-Public Use
  Company Number: 163-20785-08041667

PATIENT
  Age: 44 Year
  Sex: Female

DRUGS (3)
  1. THALOMID [Suspect]
     Indication: CROHN'S DISEASE
     Dosage: 50 MG,  1 IN 1 D,  ORAL
     Route: 048
     Dates: start: 20060222, end: 20080422
  2. NEXIUM [Concomitant]
  3. FISH OIL(FISH OIL) [Concomitant]

REACTIONS (2)
  - APPENDICITIS [None]
  - DRUG INEFFECTIVE [None]
